FAERS Safety Report 8564053 (Version 4)
Quarter: 2012Q4

REPORT INFORMATION
  Report Type: 
  Country: US (occurrence: US)
  Receive Date: 20120516
  Receipt Date: 20121018
  Transmission Date: 20130627
  Serious: Yes (Other)
  Sender: FDA-Public Use
  Company Number: US-PFIZER INC-2012115421

PATIENT
  Age: 56 Year
  Sex: Female
  Weight: 104 kg

DRUGS (2)
  1. LYRICA [Suspect]
     Indication: FIBROMYALGIA
     Dosage: UNK
  2. LYRICA [Suspect]
     Dosage: 100 mg, 2x/day
     Route: 048
     Dates: start: 201207

REACTIONS (2)
  - Chondropathy [Unknown]
  - Pain [Unknown]
